FAERS Safety Report 18024707 (Version 1)
Quarter: 2020Q3

REPORT INFORMATION
  Report Type: Spontaneous
  Country: US (occurrence: US)
  Receive Date: 20200715
  Receipt Date: 20200715
  Transmission Date: 20201103
  Serious: Yes (Hospitalization)
  Sender: FDA-Public Use
  Company Number: None

PATIENT
  Age: 30 Year
  Sex: Female
  Weight: 74.25 kg

DRUGS (1)
  1. BLUMEN ADVANCED INSTANT HAND SANITIZER CLEAR [Suspect]
     Active Substance: ALCOHOL
     Indication: COVID-19
     Dates: start: 20200322, end: 20200714

REACTIONS (9)
  - Urticaria [None]
  - Peripheral swelling [None]
  - Application site swelling [None]
  - Skin reaction [None]
  - Headache [None]
  - Application site pruritus [None]
  - Pruritus [None]
  - Dizziness [None]
  - Nausea [None]

NARRATIVE: CASE EVENT DATE: 20200707
